FAERS Safety Report 7474076-1 (Version None)
Quarter: 2011Q2

REPORT INFORMATION
  Report Type: 
  Country: None (occurrence: None)
  Receive Date: 20110511
  Receipt Date: 20110427
  Transmission Date: 20111010
  Serious: Yes (Hospitalization)
  Sender: FDA-Public Use
  Company Number: US-WATSON-2011-06289

PATIENT
  Age: 45 Year
  Sex: Female

DRUGS (1)
  1. IBUPROFEN [Suspect]
     Indication: MIGRAINE
     Dosage: 9.6-14.4 G, 1/WEEK
     Route: 048

REACTIONS (3)
  - HYPOKALAEMIA [None]
  - OVERDOSE [None]
  - RENAL TUBULAR ACIDOSIS [None]
